FAERS Safety Report 11797824 (Version 1)
Quarter: 2015Q4

REPORT INFORMATION
  Report Type: Spontaneous
  Country: CN (occurrence: CN)
  Receive Date: 20151203
  Receipt Date: 20151203
  Transmission Date: 20160305
  Serious: Yes (Hospitalization, Other)
  Sender: FDA-Public Use
  Company Number: CN-GLAXOSMITHKLINE-CN2015GSK172007

PATIENT
  Age: 21 Year
  Sex: Female

DRUGS (2)
  1. LAMOTRIGINE. [Suspect]
     Active Substance: LAMOTRIGINE
     Indication: SEIZURE
  2. LAMOTRIGINE. [Suspect]
     Active Substance: LAMOTRIGINE
     Indication: ALTERED STATE OF CONSCIOUSNESS
     Dosage: 12.5 MG, BID
     Route: 048

REACTIONS (6)
  - Dermatitis exfoliative [Unknown]
  - Rash [Unknown]
  - Skin swelling [Unknown]
  - Skin exfoliation [Unknown]
  - Condition aggravated [Unknown]
  - Skin ulcer [Unknown]
